FAERS Safety Report 24449541 (Version 1)
Quarter: 2024Q4

REPORT INFORMATION
  Report Type: Report from Study
  Country: US (occurrence: US)
  Receive Date: 20241017
  Receipt Date: 20241017
  Transmission Date: 20250115
  Serious: Yes (Hospitalization, Other)
  Sender: GILEAD
  Company Number: US-GILEAD-2024-0691279

PATIENT
  Age: 66 Year
  Sex: Male

DRUGS (23)
  1. AZTREONAM LYSINE [Suspect]
     Active Substance: AZTREONAM LYSINE
     Indication: Cystic fibrosis
     Dosage: 75 MG, TID (28 DAYS, OFF 28 DAYS)
     Route: 065
  2. AZTREONAM LYSINE [Suspect]
     Active Substance: AZTREONAM LYSINE
     Indication: Pseudomonas infection
  3. TRIKAFTA [Concomitant]
     Active Substance: ELEXACAFTOR\IVACAFTOR\TEZACAFTOR
  4. IBUPROFEN [Concomitant]
     Active Substance: IBUPROFEN
  5. HUMALOG [Concomitant]
     Active Substance: INSULIN LISPRO
  6. DULERA [Concomitant]
     Active Substance: FORMOTEROL FUMARATE DIHYDRATE\MOMETASONE FUROATE
  7. LANTUS [Concomitant]
     Active Substance: INSULIN GLARGINE
  8. PYRIDOXINE [Concomitant]
     Active Substance: PYRIDOXINE
  9. CALCIUM [Concomitant]
     Active Substance: CALCIUM
  10. RETINOL [Concomitant]
     Active Substance: RETINOL
  11. SENNA LEAF [Concomitant]
     Active Substance: SENNA LEAF
  12. VITAMIN B12 [Concomitant]
     Active Substance: CYANOCOBALAMIN
  13. ALENDRONATE [Concomitant]
     Active Substance: ALENDRONATE SODIUM
  14. MAGNESIUM [Concomitant]
     Active Substance: MAGNESIUM
  15. CITRACAL + D3 [Concomitant]
  16. AZITHROMYCIN [Concomitant]
     Active Substance: AZITHROMYCIN
  17. SERTRALINE [Concomitant]
     Active Substance: SERTRALINE HYDROCHLORIDE
  18. IRON [Concomitant]
     Active Substance: IRON
  19. PULMOZYME [Concomitant]
     Active Substance: DORNASE ALFA
  20. URSODIOL [Concomitant]
     Active Substance: URSODIOL
  21. LISINOPRIL [Concomitant]
     Active Substance: LISINOPRIL
  22. ZENPEP [Concomitant]
     Active Substance: PANCRELIPASE AMYLASE\PANCRELIPASE LIPASE\PANCRELIPASE PROTEASE
  23. VITAMIN C [Concomitant]
     Active Substance: ASCORBIC ACID

REACTIONS (2)
  - Infection [Unknown]
  - Cystic fibrosis [Unknown]

NARRATIVE: CASE EVENT DATE: 20241001
